FAERS Safety Report 10253892 (Version 2)
Quarter: 2014Q2

REPORT INFORMATION
  Report Type: Report from Study
  Country: BR (occurrence: BR)
  Receive Date: 20140623
  Receipt Date: 20140630
  Transmission Date: 20141212
  Serious: Yes (Other)
  Sender: FDA-Public Use
  Company Number: BR-ABBVIE-14P-020-1250766-00

PATIENT
  Age: 28 Year
  Sex: Female
  Weight: 73 kg

DRUGS (4)
  1. HUMIRA [Suspect]
     Indication: RHEUMATOID ARTHRITIS
     Route: 058
     Dates: start: 20090101, end: 20091001
  2. HUMIRA [Suspect]
     Route: 058
  3. CORTISONE [Concomitant]
     Indication: ARTHRITIS
     Route: 048
     Dates: start: 20091101, end: 20100619
  4. PROFENID [Concomitant]
     Indication: PAIN
     Route: 048

REACTIONS (9)
  - Abortion spontaneous [Unknown]
  - Complication of pregnancy [Unknown]
  - Unevaluable event [Unknown]
  - Pain [Unknown]
  - Pain [Unknown]
  - Osteoarthritis [Not Recovered/Not Resolved]
  - Rheumatoid arthritis [Not Recovered/Not Resolved]
  - Rheumatoid arthritis [Not Recovered/Not Resolved]
  - Hypotonia [Recovered/Resolved]
